FAERS Safety Report 24560989 (Version 1)
Quarter: 2024Q4

REPORT INFORMATION
  Report Type: Spontaneous
  Country: US (occurrence: None)
  Receive Date: 20241028
  Receipt Date: 20241028
  Transmission Date: 20250114
  Serious: Yes (Hospitalization)
  Sender: Public
  Company Number: None

PATIENT
  Age: 21 Year
  Sex: Male

DRUGS (1)
  1. OLANZAPINE [Suspect]
     Active Substance: OLANZAPINE
     Indication: Depression

REACTIONS (8)
  - Encephalopathy [None]
  - Overdose [None]
  - Palpitations [None]
  - Respiratory depression [None]
  - Tachycardia [None]
  - Electrocardiogram QT prolonged [None]
  - Lactic acidosis [None]
  - Cardiac arrest [None]

NARRATIVE: CASE EVENT DATE: 20240720
